FAERS Safety Report 5799677-8 (Version None)
Quarter: 2008Q3

REPORT INFORMATION
  Report Type: 
  Country: None (occurrence: None)
  Receive Date: 20080703
  Receipt Date: 20080627
  Transmission Date: 20090109
  Serious: Yes (Death, Life-Threatening, Hospitalization, Other)
  Sender: FDA-Public Use
  Company Number: FR-ABBOTT-08P-056-0448227-00

PATIENT
  Age: 55 Year
  Sex: Female

DRUGS (4)
  1. CLARITHROMYCIN [Suspect]
     Indication: LUNG INFECTION
     Route: 048
     Dates: start: 20071220
  2. ACETAMINOPHEN [Suspect]
     Indication: LUNG INFECTION
     Route: 048
     Dates: start: 20071220
  3. AMOXICILLIN + CLAVULANATE POTASSIUM [Suspect]
     Indication: LUNG INFECTION
     Route: 048
     Dates: start: 20071220
  4. ALBUTEROL [Concomitant]
     Indication: LUNG INFECTION
     Route: 055
     Dates: start: 20071220

REACTIONS (11)
  - ACUTE HEPATIC FAILURE [None]
  - CARDIAC ARREST [None]
  - CHOLESTASIS [None]
  - CYTOLYTIC HEPATITIS [None]
  - HEPATITIS FULMINANT [None]
  - HYPOPHAGIA [None]
  - HYPOTENSION [None]
  - ISCHAEMIC HEPATITIS [None]
  - LUNG DISORDER [None]
  - RESPIRATORY DISTRESS [None]
  - SEPTIC SHOCK [None]
